FAERS Safety Report 8849892 (Version 1)
Quarter: 2012Q4

REPORT INFORMATION
  Report Type: 
  Country: US (occurrence: US)
  Receive Date: 20121019
  Receipt Date: 20121019
  Transmission Date: 20130627
  Serious: Yes (Hospitalization)
  Sender: FDA-Public Use
  Company Number: US-BRISTOL-MYERS SQUIBB COMPANY-17028416

PATIENT
  Age: 71 Year
  Sex: Female

DRUGS (8)
  1. WARFARIN SODIUM [Suspect]
     Indication: THROMBOSIS PROPHYLAXIS
     Dosage: 1.5mg for 15 days. Dose increased to 3mg after 15 days for 8 weeks
     Dates: start: 2012
  2. LYCIUM BARBARUM L [Interacting]
  3. EZETIMIBE [Concomitant]
  4. LISINOPRIL [Concomitant]
  5. FAMOTIDINE [Concomitant]
  6. MECLIZINE [Concomitant]
  7. ALPRAZOLAM [Concomitant]
     Indication: ANXIETY
  8. DIPHENHYDRAMINE [Concomitant]
     Indication: INSOMNIA
     Dosage: At bedtime

REACTIONS (6)
  - Ecchymosis [Unknown]
  - Epistaxis [Unknown]
  - Haematochezia [Recovered/Resolved]
  - Food interaction [Unknown]
  - International normalised ratio increased [Unknown]
  - Rectal haemorrhage [None]
